FAERS Safety Report 15214003 (Version 1)
Quarter: 2018Q3

REPORT INFORMATION
  Report Type: Spontaneous
  Country: GB (occurrence: GB)
  Receive Date: 20180730
  Receipt Date: 20180730
  Transmission Date: 20181010
  Serious: No
  Sender: FDA-Public Use
  Company Number: GB-B. BRAUN MEDICAL INC.-2052907

PATIENT
  Age: 62 Year
  Sex: Female
  Weight: 77 kg

DRUGS (4)
  1. AMOROLFINE [Concomitant]
     Active Substance: AMOROLFINE
     Dates: start: 20170724
  2. METRONIDAZOLE INJECTION USP (5 MG/ML) IN PAB? PLASTIC CONTAINER (NDA 0 [Suspect]
     Active Substance: METRONIDAZOLE
     Dates: start: 20180627
  3. SALBUTAMOL [Concomitant]
     Active Substance: ALBUTEROL
     Dates: start: 20170724
  4. DUORESP SPIROMAX [Concomitant]
     Active Substance: BUDESONIDE\FORMOTEROL
     Dates: start: 20170724

REACTIONS (2)
  - Fatigue [Recovering/Resolving]
  - Dyspnoea [Recovering/Resolving]

NARRATIVE: CASE EVENT DATE: 20180627
